FAERS Safety Report 7477904-9 (Version None)
Quarter: 2011Q2

REPORT INFORMATION
  Report Type: 
  Country: None (occurrence: None)
  Receive Date: 20110513
  Receipt Date: 20110511
  Transmission Date: 20111010
  Serious: No
  Sender: FDA-Public Use
  Company Number: US-TEVA-278413USA

PATIENT
  Sex: Male

DRUGS (2)
  1. TIOTROPIUM BROMIDE [Concomitant]
  2. PROAIR HFA [Suspect]
     Route: 055

REACTIONS (1)
  - DRUG INEFFECTIVE [None]
